FAERS Safety Report 13411032 (Version 2)
Quarter: 2017Q4

REPORT INFORMATION
  Report Type: Spontaneous
  Country: US (occurrence: US)
  Receive Date: 20170406
  Receipt Date: 20171123
  Transmission Date: 20180320
  Serious: No
  Sender: FDA-Public Use
  Company Number: US-JNJFOC-20170304332

PATIENT
  Sex: Male

DRUGS (18)
  1. RISPERDAL [Suspect]
     Active Substance: RISPERIDONE
     Indication: AUTISM SPECTRUM DISORDER
     Dosage: VARYING DOSES OF 0.5 MG AND 01 MG
     Route: 048
     Dates: start: 20080223, end: 20080707
  2. RISPERDAL [Suspect]
     Active Substance: RISPERIDONE
     Indication: INTELLECTUAL DISABILITY
     Dosage: VARYING DOSES OF 0.5 MG AND 01 MG
     Route: 048
     Dates: start: 20071113
  3. RISPERIDONE. [Suspect]
     Active Substance: RISPERIDONE
     Indication: AUTISM SPECTRUM DISORDER
     Dosage: VARYING DOSES OF 01 MG, 02 MG, 03 MG
     Route: 065
     Dates: start: 20100215, end: 20141114
  4. RISPERIDONE. [Suspect]
     Active Substance: RISPERIDONE
     Indication: INTERMITTENT EXPLOSIVE DISORDER
     Dosage: VARYING DOSES OF 01 MG, 02 MG, 03 MG
     Route: 065
     Dates: start: 20100215, end: 20141114
  5. RISPERDAL [Suspect]
     Active Substance: RISPERIDONE
     Indication: INTELLECTUAL DISABILITY
     Dosage: VARYING DOSES OF 0.5 MG AND 01 MG
     Route: 048
     Dates: end: 20141114
  6. RISPERDAL [Suspect]
     Active Substance: RISPERIDONE
     Indication: AUTISM SPECTRUM DISORDER
     Dosage: VARYING DOSES OF 0.5 MG AND 01 MG
     Route: 048
     Dates: start: 20071113
  7. RISPERDAL [Suspect]
     Active Substance: RISPERIDONE
     Indication: INTERMITTENT EXPLOSIVE DISORDER
     Dosage: VARYING DOSES OF 0.5 MG AND 01 MG
     Route: 048
     Dates: start: 20080916, end: 20100113
  8. RISPERDAL [Suspect]
     Active Substance: RISPERIDONE
     Indication: INTERMITTENT EXPLOSIVE DISORDER
     Dosage: VARYING DOSES OF 0.5 MG AND 01 MG
     Route: 048
     Dates: end: 20141114
  9. RISPERIDONE. [Suspect]
     Active Substance: RISPERIDONE
     Indication: INTELLECTUAL DISABILITY
     Dosage: VARYING DOSES OF 01 MG, 02 MG, 03 MG
     Route: 065
     Dates: start: 20100215, end: 20141114
  10. RISPERDAL [Suspect]
     Active Substance: RISPERIDONE
     Indication: INTELLECTUAL DISABILITY
     Dosage: VARYING DOSES OF 0.5 MG AND 01 MG
     Route: 048
     Dates: start: 20080916, end: 20100113
  11. RISPERDAL [Suspect]
     Active Substance: RISPERIDONE
     Indication: AUTISM SPECTRUM DISORDER
     Dosage: VARYING DOSES OF 0.5 MG AND 01 MG
     Route: 048
     Dates: start: 20080916, end: 20100113
  12. RISPERDAL [Suspect]
     Active Substance: RISPERIDONE
     Indication: AUTISM SPECTRUM DISORDER
     Dosage: VARYING DOSES OF 0.5 MG AND 01 MG
     Route: 048
     Dates: end: 20141114
  13. RISPERDAL [Suspect]
     Active Substance: RISPERIDONE
     Indication: INTERMITTENT EXPLOSIVE DISORDER
     Dosage: VARYING DOSES OF 0.5 MG AND 01 MG
     Route: 048
     Dates: start: 20080223, end: 20080707
  14. RISPERIDONE. [Suspect]
     Active Substance: RISPERIDONE
     Indication: INTELLECTUAL DISABILITY
     Dosage: VARYING DOSES OF 01 MG, 02 MG, 03 MG
     Route: 065
     Dates: start: 20080709
  15. RISPERIDONE. [Suspect]
     Active Substance: RISPERIDONE
     Indication: AUTISM SPECTRUM DISORDER
     Dosage: VARYING DOSES OF 01 MG, 02 MG, 03 MG
     Route: 065
     Dates: start: 20080709
  16. RISPERIDONE. [Suspect]
     Active Substance: RISPERIDONE
     Indication: INTERMITTENT EXPLOSIVE DISORDER
     Dosage: VARYING DOSES OF 01 MG, 02 MG, 03 MG
     Route: 065
     Dates: start: 20080709
  17. RISPERDAL [Suspect]
     Active Substance: RISPERIDONE
     Indication: INTELLECTUAL DISABILITY
     Dosage: VARYING DOSES OF 0.5 MG AND 01 MG
     Route: 048
     Dates: start: 20080223, end: 20080707
  18. RISPERDAL [Suspect]
     Active Substance: RISPERIDONE
     Indication: INTERMITTENT EXPLOSIVE DISORDER
     Dosage: VARYING DOSES OF 0.5 MG AND 01 MG
     Route: 048
     Dates: start: 20071113

REACTIONS (2)
  - Gynaecomastia [Unknown]
  - Emotional disorder [Unknown]
